FAERS Safety Report 26128561 (Version 1)
Quarter: 2025Q4

REPORT INFORMATION
  Report Type: Spontaneous
  Country: CN (occurrence: CN)
  Receive Date: 20251207
  Receipt Date: 20251207
  Transmission Date: 20260118
  Serious: Yes (Hospitalization)
  Sender: AMGEN
  Company Number: CN-PFIZER INC-PV202500141472

PATIENT
  Age: 87 Year
  Sex: Female
  Weight: 61.5 kg

DRUGS (2)
  1. ENBREL [Suspect]
     Active Substance: ETANERCEPT
     Indication: Rheumatoid arthritis
     Dosage: 50 MG, WEEKLY
     Route: 058
     Dates: start: 20251017, end: 20251116
  2. ISONIAZID [Suspect]
     Active Substance: ISONIAZID
     Indication: Antibiotic prophylaxis
     Dosage: 0.3 G, 1X/DAY
     Route: 048
     Dates: start: 20251017, end: 20251116

REACTIONS (4)
  - Hepatic function abnormal [Recovering/Resolving]
  - Platelet count decreased [Recovering/Resolving]
  - Face oedema [Recovering/Resolving]
  - Oedema peripheral [Recovering/Resolving]

NARRATIVE: CASE EVENT DATE: 20251114
